FAERS Safety Report 11451805 (Version 1)
Quarter: 2015Q3

REPORT INFORMATION
  Report Type: Spontaneous
  Country: US (occurrence: US)
  Receive Date: 20150903
  Receipt Date: 20150903
  Transmission Date: 20151125
  Serious: No
  Sender: FDA-Public Use
  Company Number: US-ROCHE-1056801

PATIENT
  Sex: Female

DRUGS (3)
  1. TELAPREVIR [Concomitant]
     Active Substance: TELAPREVIR
     Route: 065
     Dates: start: 20120313
  2. PEGASYS [Suspect]
     Active Substance: PEGINTERFERON ALFA-2A
     Indication: CHRONIC HEPATITIS C
     Route: 058
     Dates: start: 20120313
  3. COPEGUS [Concomitant]
     Active Substance: RIBAVIRIN
     Dosage: INDIVIDED DOSES
     Route: 048
     Dates: start: 20120313

REACTIONS (2)
  - No adverse event [Unknown]
  - Drug administration error [Unknown]
